FAERS Safety Report 9147198 (Version 2)
Quarter: 2013Q1

REPORT INFORMATION
  Report Type: Spontaneous
  Country: JP (occurrence: None)
  Receive Date: 20130226
  Receipt Date: 20130307
  Transmission Date: 20140127
  Serious: Yes (Death)
  Sender: FDA-Public Use
  Company Number: JP-010999

PATIENT
  Age: 84 Year
  Sex: Male
  Weight: 64 kg

DRUGS (12)
  1. DEGARELIX (GONAX) [Suspect]
     Indication: PROSTATE CANCER
     Dosage: (SUBCUTANEOUS)?(01/04/2013  TO  01/04/2013)
     Route: 058
     Dates: start: 20130104, end: 20130104
  2. LASIX /00032601/ [Concomitant]
  3. DENOSUMAB [Concomitant]
  4. ROPION [Concomitant]
  5. BIO-THREE [Concomitant]
  6. UFT E [Concomitant]
  7. CALCIUM LACTATE [Concomitant]
  8. OXYCONTIN [Concomitant]
  9. ULCERLMIN [Concomitant]
  10. TAKEPRON [Concomitant]
  11. NORVASC [Concomitant]
  12. DIOVAN [Concomitant]

REACTIONS (6)
  - Prostate cancer [None]
  - Disease progression [None]
  - Decreased appetite [None]
  - Urinary tract infection [None]
  - Depressed level of consciousness [None]
  - Urine output decreased [None]
